FAERS Safety Report 4995692-2 (Version None)
Quarter: 2006Q1

REPORT INFORMATION
  Report Type: 
  Country: None (occurrence: None)
  Receive Date: 20060315
  Receipt Date: 20060109
  Transmission Date: 20060701
  Serious: Yes (Other)
  Sender: FDA-Public Use
  Company Number: 432221

PATIENT
  Age: 65 Year
  Sex: Female

DRUGS (2)
  1. BONIVA [Suspect]
     Indication: OSTEOPOROSIS
     Dates: start: 20060106
  2. OSCAL (CALCIUM CARBONATE) [Concomitant]

REACTIONS (6)
  - ARTHRALGIA [None]
  - BACK PAIN [None]
  - FATIGUE [None]
  - PAIN [None]
  - PAIN IN EXTREMITY [None]
  - SHOULDER PAIN [None]
